FAERS Safety Report 9352752 (Version 1)
Quarter: 2013Q2

REPORT INFORMATION
  Report Type: Spontaneous
  Country: US (occurrence: None)
  Receive Date: 20130614
  Receipt Date: 20130614
  Transmission Date: 20140414
  Serious: No
  Sender: FDA-Public Use
  Company Number: None

PATIENT
  Age: 10 Year
  Sex: Female

DRUGS (1)
  1. TEV TROPIN [Suspect]
     Route: 058
     Dates: start: 20120928

REACTIONS (1)
  - Pain in extremity [None]
